FAERS Safety Report 9490623 (Version 2)
Quarter: 2013Q4

REPORT INFORMATION
  Report Type: Spontaneous
  Country: GB (occurrence: GB)
  Receive Date: 20130830
  Receipt Date: 20131003
  Transmission Date: 20140711
  Serious: Yes (Hospitalization)
  Sender: FDA-Public Use
  Company Number: PHFR2013GB004953

PATIENT
  Age: 41 Year
  Sex: Female

DRUGS (1)
  1. CLOZARIL [Suspect]
     Dosage: 225 MG, PER DAY
     Dates: start: 201211, end: 201308

REACTIONS (2)
  - Mental impairment [Not Recovered/Not Resolved]
  - Anosognosia [Not Recovered/Not Resolved]
